FAERS Safety Report 5985605-9 (Version None)
Quarter: 2008Q4

REPORT INFORMATION
  Report Type: 
  Country: None (occurrence: None)
  Receive Date: 20081208
  Receipt Date: 20080326
  Transmission Date: 20090506
  Serious: No
  Sender: FDA-Public Use
  Company Number: US-AMGEN-KDL271290

PATIENT
  Sex: Female

DRUGS (2)
  1. ENBREL [Suspect]
     Indication: ANKYLOSING SPONDYLITIS
     Route: 058
     Dates: start: 20070601
  2. ENBREL [Suspect]
     Indication: PSORIASIS

REACTIONS (5)
  - FEELING HOT [None]
  - PAIN [None]
  - PRURITUS GENERALISED [None]
  - PSORIASIS [None]
  - VOMITING [None]
